FAERS Safety Report 20322824 (Version 1)
Quarter: 2022Q1

REPORT INFORMATION
  Report Type: Spontaneous
  Country: US (occurrence: US)
  Receive Date: 20220111
  Receipt Date: 20220111
  Transmission Date: 20220423
  Serious: Yes (Hospitalization)
  Sender: FDA-Public Use
  Company Number: US-LUPIN PHARMACEUTICALS INC.-2021-26708

PATIENT
  Age: 7 Year
  Sex: Male

DRUGS (7)
  1. METHYLPHENIDATE HYDROCHLORIDE [Suspect]
     Active Substance: METHYLPHENIDATE HYDROCHLORIDE
     Indication: Depressed level of consciousness
     Dosage: UNK
     Route: 065
  2. ZOLPIDEM [Suspect]
     Active Substance: ZOLPIDEM TARTRATE
     Indication: Depressed level of consciousness
     Dosage: 2.5 MILLIGRAM
     Route: 065
  3. ZOLPIDEM [Suspect]
     Active Substance: ZOLPIDEM TARTRATE
     Dosage: 5 MILLIGRAM (RECEIVED 5 MG AT 8 AM ON THE NEXT DAY)
     Route: 065
  4. AMANTADINE [Concomitant]
     Active Substance: AMANTADINE
     Indication: Depressed level of consciousness
     Dosage: UNK
     Route: 065
  5. BROMOCRIPTINE [Concomitant]
     Active Substance: BROMOCRIPTINE
     Indication: Depressed level of consciousness
     Dosage: UNK (RECEIVED HIGH DOSE BROMOCRIPTINE (EXACT DOSE NOT STATED)
     Route: 065
  6. BROMOCRIPTINE [Concomitant]
     Active Substance: BROMOCRIPTINE
     Dosage: 1.25 MILLIGRAM, BID
     Route: 065
  7. DEXTROAMPHET SACCHARAT, AMPHET ASPARTATE, DEXTROAMPHET SULFATE AND AMP [Concomitant]
     Active Substance: AMPHETAMINE ASPARTATE\AMPHETAMINE SULFATE\DEXTROAMPHETAMINE SACCHARATE\DEXTROAMPHETAMINE SULFATE
     Indication: Depressed level of consciousness
     Dosage: 10 MILLIGRAM, BID ( (THE DOSE WAS WAS TITRATED TO 10MG, WHICH WAS RECEIVED AT 8 AM AND NOON))
     Route: 065

REACTIONS (3)
  - Heart rate increased [Unknown]
  - Blood pressure increased [Unknown]
  - Off label use [Unknown]
